FAERS Safety Report 14557705 (Version 1)
Quarter: 2018Q1

REPORT INFORMATION
  Report Type: Spontaneous
  Country: US (occurrence: US)
  Receive Date: 20180221
  Receipt Date: 20180221
  Transmission Date: 20180509
  Serious: No
  Sender: FDA-Public Use
  Company Number: US-BAYER-2018-031599

PATIENT
  Age: 42 Year
  Sex: Male

DRUGS (1)
  1. ACARBOSE. [Suspect]
     Active Substance: ACARBOSE
     Indication: GASTRIC DISORDER
     Dosage: UNK

REACTIONS (4)
  - Off label use [None]
  - Drug ineffective for unapproved indication [None]
  - Hypoglycaemia [None]
  - Product use in unapproved indication [None]
